FAERS Safety Report 8522527-3 (Version None)
Quarter: 2012Q3

REPORT INFORMATION
  Report Type: 
  Country: None (occurrence: None)
  Receive Date: 20120719
  Receipt Date: 20120711
  Transmission Date: 20120928
  Serious: Yes (Other)
  Sender: FDA-Public Use
  Company Number: US-ABBOTT-12P-163-0955265-00

PATIENT
  Sex: Female
  Weight: 55.842 kg

DRUGS (3)
  1. HUMIRA [Suspect]
     Indication: CROHN'S DISEASE
     Route: 058
     Dates: start: 20120501
  2. WELLBUTRIN [Concomitant]
     Indication: DEPRESSION
  3. FENTANYL [Concomitant]
     Indication: PAIN
     Dosage: PATCH
     Route: 062

REACTIONS (8)
  - VOMITING [None]
  - INJECTION SITE PRURITUS [None]
  - INFLUENZA [None]
  - BLOOD POTASSIUM DECREASED [None]
  - GASTROENTERITIS [None]
  - PAIN [None]
  - OEDEMA PERIPHERAL [None]
  - DEHYDRATION [None]
